FAERS Safety Report 5179121-4 (Version None)
Quarter: 2006Q4

REPORT INFORMATION
  Report Type: 
  Country: None (occurrence: None)
  Receive Date: 20061219
  Receipt Date: 20061101
  Transmission Date: 20070319
  Serious: Yes (Death, Other)
  Sender: FDA-Public Use
  Company Number: PHBS2006JP17001

PATIENT
  Age: 62 Year
  Sex: Female

DRUGS (3)
  1. NEORAL [Suspect]
     Indication: ORGAN TRANSPLANT
     Dosage: 5 MG/KG/D
     Route: 048
     Dates: start: 20000401, end: 20060401
  2. CELLCEPT [Suspect]
     Indication: RENAL TRANSPLANT
     Dosage: 2 G/D
     Route: 048
     Dates: start: 20000501, end: 20060301
  3. PREDONINE [Suspect]
     Indication: RENAL TRANSPLANT
     Dosage: 20 MG/D
     Route: 048
     Dates: start: 20000101

REACTIONS (4)
  - INFECTION IN AN IMMUNOCOMPROMISED HOST [None]
  - JC VIRUS INFECTION [None]
  - MENTAL RETARDATION SEVERITY UNSPECIFIED [None]
  - PROGRESSIVE MULTIFOCAL LEUKOENCEPHALOPATHY [None]
